FAERS Safety Report 7271639-3 (Version None)
Quarter: 2011Q1

REPORT INFORMATION
  Report Type: 
  Country: None (occurrence: None)
  Receive Date: 20110125
  Receipt Date: 20110125
  Transmission Date: 20110831
  Serious: Yes (Hospitalization)
  Sender: FDA-Public Use
  Company Number: None

PATIENT
  Age: 81 Year
  Sex: Male
  Weight: 71 kg

DRUGS (1)
  1. SULFAMETHOXAZOLE AND TRIMETHOPRIM [Suspect]
     Indication: UPPER RESPIRATORY TRACT INFECTION
     Dosage: 800/160 MG BID PO
     Route: 048
     Dates: start: 20110112, end: 20110120

REACTIONS (5)
  - RENAL FAILURE ACUTE [None]
  - SYNCOPE [None]
  - LOSS OF CONSCIOUSNESS [None]
  - METABOLIC ACIDOSIS [None]
  - RENAL TUBULAR ACIDOSIS [None]
